FAERS Safety Report 6375675-0 (Version None)
Quarter: 2009Q3

REPORT INFORMATION
  Report Type: 
  Country: None (occurrence: None)
  Receive Date: 20090921
  Receipt Date: 20090921
  Transmission Date: 20100115
  Serious: Yes (Hospitalization)
  Sender: FDA-Public Use
  Company Number: None

PATIENT
  Age: 85 Year
  Sex: Male
  Weight: 80 kg

DRUGS (2)
  1. METOLAZONE [Suspect]
     Dosage: 5 MG OTHER PO
     Route: 048
     Dates: start: 20090325, end: 20090901
  2. FUROSEMIDE [Suspect]
     Dosage: 100 MG BID PO
     Route: 048
     Dates: start: 20080903, end: 20090901

REACTIONS (5)
  - ASTHENIA [None]
  - BLOOD CREATININE INCREASED [None]
  - BLOOD UREA INCREASED [None]
  - HYPOKALAEMIA [None]
  - WEIGHT DECREASED [None]
